FAERS Safety Report 17276475 (Version 1)
Quarter: 2020Q1

REPORT INFORMATION
  Report Type: Spontaneous
  Country: US (occurrence: US)
  Receive Date: 20200116
  Receipt Date: 20200116
  Transmission Date: 20200409
  Serious: No
  Sender: FDA-Public Use
  Company Number: US-GLAXOSMITHKLINE-US2020005752

PATIENT
  Age: 50 Year
  Sex: Female

DRUGS (1)
  1. ABREVA [Suspect]
     Active Substance: DOCOSANOL
     Indication: ORAL HERPES
     Dosage: UNK, 5 TIMES A DAY
     Dates: start: 20191224

REACTIONS (4)
  - Condition aggravated [Unknown]
  - Product complaint [Unknown]
  - Wrong technique in product usage process [Unknown]
  - Oral herpes [Unknown]

NARRATIVE: CASE EVENT DATE: 20191224
